FAERS Safety Report 9992176 (Version 2)
Quarter: 2014Q1

REPORT INFORMATION
  Report Type: Spontaneous
  Country: US (occurrence: US)
  Receive Date: 20140310
  Receipt Date: 20140310
  Transmission Date: 20141002
  Serious: Yes (Disabling)
  Sender: FDA-Public Use
  Company Number: US-GE HEALTHCARE MEDICAL DIAGNOSTICS-OSCN-PR-1201S-0004

PATIENT
  Age: 20 Year
  Sex: Male

DRUGS (23)
  1. OMNISCAN [Suspect]
     Indication: RENAL MASS
     Dates: start: 20040625, end: 20040625
  2. OMNISCAN [Suspect]
     Indication: PITUITARY TUMOUR
     Dates: start: 20050318, end: 20050318
  3. GADOLINIUM (UNSPECIFIED) [Suspect]
     Indication: RENAL FAILURE
     Dates: start: 20030115, end: 20030115
  4. GADOLINIUM (UNSPECIFIED) [Suspect]
     Indication: LOCAL SWELLING
     Dates: start: 20030513, end: 20030513
  5. GADOLINIUM (UNSPECIFIED) [Suspect]
     Indication: BLOOD GROWTH HORMONE INCREASED
     Dates: start: 20041004, end: 20041004
  6. GADOLINIUM (UNSPECIFIED) [Suspect]
     Indication: PITUITARY TUMOUR BENIGN
     Dates: start: 20041015, end: 20041015
  7. MAGNEVIST [Suspect]
     Indication: HEADACHE
     Dates: start: 20030510, end: 20030510
  8. MAGNEVIST [Suspect]
     Indication: HYPERTENSION
     Route: 042
     Dates: start: 20041123, end: 20041123
  9. MAGNEVIST [Suspect]
     Indication: PITUITARY TUMOUR
  10. PROGRAF [Concomitant]
  11. CELLCEPT [Concomitant]
  12. PREDNISONE [Concomitant]
  13. LABETALOL [Concomitant]
  14. LISINOPRIL [Concomitant]
  15. MINOXIDIL [Concomitant]
  16. CLONIDINE [Concomitant]
  17. PHOSLO [Concomitant]
  18. NORVASC [Concomitant]
  19. PROCRIT [Concomitant]
  20. IRON [Concomitant]
  21. RENAGEL [Concomitant]
  22. ASPIRIN [Concomitant]
  23. MAGNESIUM [Concomitant]

REACTIONS (1)
  - Nephrogenic systemic fibrosis [Not Recovered/Not Resolved]
